FAERS Safety Report 9344342 (Version 3)
Quarter: 2014Q1

REPORT INFORMATION
  Report Type: Report from Study
  Country: US (occurrence: US)
  Receive Date: 20130612
  Receipt Date: 20140127
  Transmission Date: 20141002
  Serious: Yes (Death, Hospitalization, Other)
  Sender: FDA-Public Use
  Company Number: US-ASTELLAS-2013US005929

PATIENT
  Sex: Female

DRUGS (1)
  1. ERLOTINIB TABLET [Suspect]
     Indication: ACUTE MYELOID LEUKAEMIA
     Dosage: 150 MG, UID/QD
     Route: 048
     Dates: start: 201305, end: 20130527

REACTIONS (11)
  - Off label use [Unknown]
  - Hepatic cyst [Unknown]
  - Hepatic haemorrhage [Unknown]
  - Pulmonary oedema [Unknown]
  - Small intestinal obstruction [Unknown]
  - Ileus [Unknown]
  - Nausea [Unknown]
  - Pleural effusion [Unknown]
  - Pneumonia [Unknown]
  - Hepatomegaly [Unknown]
  - Malignant neoplasm progression [Fatal]
